FAERS Safety Report 9518785 (Version 2)
Quarter: 2013Q3

REPORT INFORMATION
  Report Type: Spontaneous
  Country: US (occurrence: US)
  Receive Date: 20130912
  Receipt Date: 20130912
  Transmission Date: 20140515
  Serious: Yes (Other)
  Sender: FDA-Public Use
  Company Number: US-AMGEN-USASP2013056924

PATIENT
  Age: 76 Year
  Sex: Male
  Weight: 81.63 kg

DRUGS (24)
  1. PROCRIT [Suspect]
     Indication: RED BLOOD CELL COUNT DECREASED
     Dosage: 10000 UNIT, Q2WK
     Route: 058
  2. PROCRIT [Suspect]
     Indication: RENAL IMPAIRMENT
  3. ALLOPURINOL [Concomitant]
     Dosage: 300 MG, QD PM
     Route: 048
  4. AVODART [Concomitant]
     Indication: PROSTATOMEGALY
     Dosage: 0.5 MG, QD PM
     Route: 048
  5. DRISDOL [Concomitant]
     Indication: VITAMIN D DEFICIENCY
     Dosage: 50000 MG, QWK AM MONDAYS
     Route: 048
  6. TRICOR                             /00499301/ [Concomitant]
     Dosage: 145 MG, QD AM
     Route: 048
  7. FERROUS SULFATE [Concomitant]
     Indication: IRON DEFICIENCY
     Dosage: 325 MG, QD PM
     Route: 048
  8. FUROSEMIDE [Concomitant]
     Dosage: 40 MG, QD AM
     Route: 048
  9. LISINOPRIL [Concomitant]
     Dosage: 10 MG, QD AM
     Route: 048
  10. NEXIUM                             /01479302/ [Concomitant]
     Dosage: 40 MG, QD AM 1/2 HR BEFORE 1ST MEAL
     Route: 048
  11. NORVASC [Concomitant]
     Dosage: 5 MG, QD PM
     Route: 048
  12. PRIMIDONE [Concomitant]
     Indication: TREMOR
     Dosage: 50 MG, THREE TABLETS TWICE DAILY
     Route: 048
     Dates: start: 2013
  13. PRIMIDONE [Concomitant]
     Dosage: 50 MG X3, AM + 3 AT NIGHT
  14. ROCALTROL [Concomitant]
     Dosage: 0.5 MUG, ONCE DAILY PM
     Route: 048
  15. FLOMAX                             /01280302/ [Concomitant]
     Indication: PROSTATOMEGALY
     Dosage: 0.4 MG, ONCE DAILY AM
     Route: 048
  16. ULTRAM                             /00599202/ [Concomitant]
     Indication: PAIN
     Dosage: 50 MG, EVERY SIX HOURS AS NEEDED
     Route: 048
  17. XALATAN [Concomitant]
     Indication: INTRAOCULAR PRESSURE INCREASED
     Dosage: 0.005 %, ONE DROP IN EACH EYE AT NIGHT
     Route: 047
  18. BAYER ASPIRIN [Concomitant]
     Indication: CARDIAC DISORDER
     Dosage: 81 MG, ONCE DAILY PM
     Route: 048
  19. CENTRUM SILVER                     /02363801/ [Concomitant]
     Dosage: UNK UNK, ONCE DAILY AM
     Route: 048
  20. FISH OIL [Concomitant]
     Dosage: 1000 MG, ONCE DAILY AM
     Route: 048
  21. ORTHOFLEX [Concomitant]
     Dosage: UNK, TWICE DAILY
     Route: 048
  22. ORTHOFLEX [Concomitant]
     Dosage: UNK TRIPLE STRENGTH X2 AM+ PM
  23. ZINC [Concomitant]
     Indication: NASOPHARYNGITIS
     Dosage: 50 MG, UNK
  24. JANUVIA [Concomitant]
     Dosage: UNK

REACTIONS (1)
  - Syncope [Recovered/Resolved]
